FAERS Safety Report 19226950 (Version 1)
Quarter: 2021Q2

REPORT INFORMATION
  Report Type: Spontaneous
  Country: SE (occurrence: SE)
  Receive Date: 20210506
  Receipt Date: 20210506
  Transmission Date: 20210717
  Serious: Yes (Hospitalization)
  Sender: FDA-Public Use
  Company Number: SE-TEVA-2021-SE-1907742

PATIENT
  Age: 78 Year
  Sex: Female

DRUGS (10)
  1. CALCICHEW?D3 CITRON 500 MG/800 IE TUGGTABLETT [Concomitant]
     Dosage: 1 DF
     Dates: start: 20210329
  2. XARELTO [Concomitant]
     Active Substance: RIVAROXABAN
     Dosage: 20 MG
     Dates: start: 20180125
  3. OXYCODONE [Suspect]
     Active Substance: OXYCODONE
     Indication: PAIN
     Dosage: 10 MG
     Dates: start: 20210321
  4. ALVEDON 500 MG FILMDRAGERAD TABLETT [Concomitant]
     Active Substance: ACETAMINOPHEN
     Dosage: 4000 MG
     Dates: start: 20190708
  5. ZOLEDRONIC ACID (ANHYDROUS) [Concomitant]
     Active Substance: ZOLEDRONIC ACID ANHYDROUS
     Dosage: 100 ML AS AN INFUSION FOR 15 MINUTES ONCE A YEAR FOR 3 YEARS
     Route: 042
     Dates: start: 20210325
  6. ROSUVASTATIN. [Concomitant]
     Active Substance: ROSUVASTATIN
     Dosage: 40 MG
     Dates: start: 20190213
  7. BUPRENORPHINE. [Concomitant]
     Active Substance: BUPRENORPHINE
     Dosage: DEPOT PATCHES , STRENGTH 10 UG / H, 1 PATCH + 1 MORE AFTER 3 DAYS
     Dates: start: 20210329
  8. INOLAXOL  GRANULAT I DOSPASE [Concomitant]
     Dosage: IN SACHETS , 1 DF
     Dates: start: 20200508
  9. BISOSTAD 2,5 MG TABLETT [Concomitant]
     Dosage: 0,5+1 TABLET
     Dates: start: 20180124
  10. ZOLPIDEM [Concomitant]
     Active Substance: ZOLPIDEM TARTRATE
     Dosage: 0.5?1 TABLET / DAY
     Dates: start: 20190524

REACTIONS (3)
  - Somnolence [Recovering/Resolving]
  - Personality change [Recovering/Resolving]
  - Overdose [Recovering/Resolving]

NARRATIVE: CASE EVENT DATE: 20210401
